FAERS Safety Report 14612419 (Version 2)
Quarter: 2018Q1

REPORT INFORMATION
  Report Type: Spontaneous
  Country: US (occurrence: US)
  Receive Date: 20180308
  Receipt Date: 20180308
  Transmission Date: 20180509
  Serious: Yes (Other)
  Sender: FDA-Public Use
  Company Number: US-DRREDDYS-USA/USA/18/0096637

PATIENT
  Age: 70 Year
  Sex: Male

DRUGS (1)
  1. TACROLIMUS. [Suspect]
     Active Substance: TACROLIMUS
     Indication: IMMUNOSUPPRESSION
     Dosage: 50 PERCENT REDUCED DOSE
     Route: 065
     Dates: start: 201611

REACTIONS (9)
  - Therapeutic response decreased [Unknown]
  - Disease progression [Unknown]
  - Metastases to lung [Unknown]
  - Chronic kidney disease [Unknown]
  - Drug interaction [Unknown]
  - Retroperitoneal mass [Unknown]
  - Drug level above therapeutic [Unknown]
  - Fatigue [Unknown]
  - Metabolic acidosis [Unknown]

NARRATIVE: CASE EVENT DATE: 2017
